FAERS Safety Report 14303866 (Version 2)
Quarter: 2018Q1

REPORT INFORMATION
  Report Type: Report from Study
  Country: GB (occurrence: GB)
  Receive Date: 20171219
  Receipt Date: 20180117
  Transmission Date: 20180509
  Serious: Yes (Death)
  Sender: FDA-Public Use
  Company Number: GB-BAXTER-2017BAX039554

PATIENT
  Age: 67 Year
  Sex: Male

DRUGS (13)
  1. WATER FOR INJECTION [Suspect]
     Active Substance: WATER
     Indication: PARENTERAL NUTRITION
     Route: 065
     Dates: start: 20171119, end: 201711
  2. VITALIPID N ADULT [Suspect]
     Active Substance: ERGOCALCIFEROL\PHYTONADIONE\RETINOL\TOCOPHEROL
     Indication: PARENTERAL NUTRITION
     Route: 065
     Dates: start: 20171119, end: 201711
  3. SYNTHAMIN [Suspect]
     Active Substance: AMINO ACIDS
     Indication: PARENTERAL NUTRITION
     Route: 065
     Dates: start: 20171119, end: 201711
  4. ADDITRACE [Suspect]
     Active Substance: MINERALS
     Indication: PARENTERAL NUTRITION
     Route: 065
     Dates: start: 20171119, end: 201711
  5. SOLIVITO N [Suspect]
     Active Substance: ASCORBIC ACID\BIOTIN\CYANOCOBALAMIN\FOLIC ACID\NIACINAMIDE\PANTOTHENIC ACID\PYRIDOXINE\RIBOFLAVIN\THIAMINE
     Indication: PARENTERAL NUTRITION
     Route: 065
     Dates: start: 20171119, end: 201711
  6. POTASSIUM CHLORIDE. [Suspect]
     Active Substance: POTASSIUM CHLORIDE
     Indication: PARENTERAL NUTRITION
     Dosage: BAXTER UNLICENSED SPECIAL
     Route: 065
     Dates: start: 20171119, end: 201711
  7. SODIUM GLYCEROPHOSPHATE [Suspect]
     Active Substance: SODIUM GLYCEROPHOSPHATE
     Indication: PARENTERAL NUTRITION
     Dosage: BAXTER UNLICENSED SPECIAL
     Route: 065
     Dates: start: 20171119, end: 201711
  8. SODIUM CHLORIDE. [Suspect]
     Active Substance: SODIUM CHLORIDE
     Indication: PARENTERAL NUTRITION
     Dosage: BAXTER UNLICENSED SPECIAL
     Route: 065
     Dates: start: 20171119, end: 201711
  9. GLUCOSE 50% W/V CONCENTRATE FOR SOLUTION FOR INFUSION [Suspect]
     Active Substance: DEXTROSE
     Indication: PARENTERAL NUTRITION
     Route: 065
     Dates: start: 20171119, end: 201711
  10. STERILE WATER FOR IRRIGATION [Suspect]
     Active Substance: WATER
     Indication: PARENTERAL NUTRITION
     Dosage: UROMATIC IRRIGATION (3000 ML STERILE WATER)
     Route: 065
     Dates: start: 20171119, end: 201711
  11. CLINOLEIC 20% [Suspect]
     Active Substance: OLIVE OIL\SOYBEAN OIL
     Indication: PARENTERAL NUTRITION
     Route: 065
     Dates: start: 20171119, end: 201711
  12. CALCIUM CHLORIDE. [Suspect]
     Active Substance: CALCIUM CHLORIDE
     Indication: PARENTERAL NUTRITION
     Dosage: BAXTER UNLICENSED SPECIAL
     Route: 065
     Dates: start: 20171119, end: 201711
  13. MAGNESIUM SULPHATE [Suspect]
     Active Substance: MAGNESIUM SULFATE
     Indication: PARENTERAL NUTRITION
     Dosage: BAXTER UNLICENSED SPECIAL
     Route: 065
     Dates: start: 20171119, end: 201711

REACTIONS (2)
  - Death [Fatal]
  - Expired product administered [Unknown]

NARRATIVE: CASE EVENT DATE: 20171119
